FAERS Safety Report 8398941-6 (Version None)
Quarter: 2012Q2

REPORT INFORMATION
  Report Type: 
  Country: None (occurrence: None)
  Receive Date: 20120531
  Receipt Date: 20120518
  Transmission Date: 20120825
  Serious: No
  Sender: FDA-Public Use
  Company Number: US-ASTRAZENECA-2012SE22128

PATIENT
  Age: 76 Year
  Sex: Female

DRUGS (3)
  1. FEMARA [Suspect]
     Route: 048
  2. ARIMIDEX [Suspect]
     Route: 048
  3. NEXIUM [Suspect]
     Route: 048

REACTIONS (5)
  - BONE PAIN [None]
  - ADVERSE DRUG REACTION [None]
  - NIGHT SWEATS [None]
  - HYPERTENSION [None]
  - INTENTIONAL DRUG MISUSE [None]
